FAERS Safety Report 5438436-2 (Version None)
Quarter: 2007Q3

REPORT INFORMATION
  Report Type: 
  Country: None (occurrence: None)
  Receive Date: 20070831
  Receipt Date: 20070821
  Transmission Date: 20080115
  Serious: Yes (Death, Hospitalization)
  Sender: FDA-Public Use
  Company Number: US-ELI_LILLY_AND_COMPANY-US200708004415

PATIENT
  Age: 90 Year
  Sex: Male

DRUGS (2)
  1. FORTEO [Suspect]
     Indication: OSTEOPOROSIS
     Dates: start: 20050101
  2. DILANTIN [Concomitant]
     Indication: CONVULSION
     Dates: end: 20060101

REACTIONS (5)
  - BLADDER DISORDER [None]
  - LUNG DISORDER [None]
  - LUNG INFECTION [None]
  - NASOPHARYNGITIS [None]
  - PNEUMONIA [None]
